FAERS Safety Report 7438916-4 (Version None)
Quarter: 2011Q2

REPORT INFORMATION
  Report Type: 
  Country: None (occurrence: None)
  Receive Date: 20110426
  Receipt Date: 20110415
  Transmission Date: 20111010
  Serious: Yes (Other)
  Sender: FDA-Public Use
  Company Number: FR-GENENTECH-317174

PATIENT
  Sex: Male

DRUGS (3)
  1. RITUXIMAB [Suspect]
     Indication: B-CELL SMALL LYMPHOCYTIC LYMPHOMA
     Dosage: 890 MG, QAM
     Route: 042
     Dates: start: 20101124, end: 20101124
  2. FLUDARABINE [Suspect]
     Indication: B-CELL SMALL LYMPHOCYTIC LYMPHOMA
     Dosage: 10 MG, UNK
     Route: 002
     Dates: start: 20101124, end: 20101126
  3. CYCLOPHOSPHAMIDE [Suspect]
     Indication: B-CELL SMALL LYMPHOCYTIC LYMPHOMA
     Dosage: 50 MG, UNK
     Route: 002
     Dates: start: 20101124, end: 20101126

REACTIONS (1)
  - BASAL CELL CARCINOMA [None]
